FAERS Safety Report 10144076 (Version 2)
Quarter: 2014Q2

REPORT INFORMATION
  Report Type: Spontaneous
  Country: IE (occurrence: IE)
  Receive Date: 20140430
  Receipt Date: 20140523
  Transmission Date: 20141212
  Serious: Yes (Life-Threatening, Hospitalization, Other)
  Sender: FDA-Public Use
  Company Number: IE-PFIZER INC-2014116057

PATIENT
  Age: 72 Year
  Sex: Female

DRUGS (19)
  1. ZITHROMAX [Suspect]
     Indication: LOWER RESPIRATORY TRACT INFECTION
     Dosage: 250 MG, 2X/DAY
     Route: 048
     Dates: start: 20140324, end: 20140406
  2. COZAAR [Concomitant]
     Dosage: 50 MG, UNK
  3. DILZEM [Concomitant]
     Dosage: 120 MG, 2X/DAY
  4. LASIX [Concomitant]
     Dosage: 40 MG, 1X/DAY
  5. LIPITOR [Concomitant]
     Dosage: 20 MG, 1X/DAY
  6. SERETIDE DISKUS [Concomitant]
     Dosage: 500 UG, UNK
  7. VENTOLIN [Concomitant]
  8. ASPIRIN [Concomitant]
     Dosage: 75 MG, UNK
  9. COMBIVENT [Concomitant]
     Dosage: 2.5 ML, UNK
  10. NU-SEALS [Concomitant]
     Dosage: 75 MG, UNK
  11. CALTRATE [Concomitant]
     Dosage: 600 MG/400 IU
  12. ZOTON FASTABS [Concomitant]
     Dosage: 30 MG, UNK
  13. PARALIEF [Concomitant]
     Dosage: 500 MG, UNK
  14. SPIRIVA [Concomitant]
     Dosage: 2.5 UG, UNK
  15. PLUMICORT [Concomitant]
     Dosage: 0.5 MG/2ML
  16. GAVISCON LIQUID [Concomitant]
  17. LACTULOSE [Concomitant]
  18. EXPUTEX [Concomitant]
     Dosage: 250 MG/5ML
     Route: 048
  19. MAXITROL [Concomitant]
     Dosage: 6000 IU/ML, UNK

REACTIONS (2)
  - Cardiac arrest [Recovered/Resolved]
  - Ventricular tachycardia [Recovered/Resolved]
